FAERS Safety Report 14667912 (Version 1)
Quarter: 2018Q1

REPORT INFORMATION
  Report Type: Spontaneous
  Country: US (occurrence: US)
  Receive Date: 20180322
  Receipt Date: 20180322
  Transmission Date: 20180509
  Serious: Yes (Death)
  Sender: FDA-Public Use
  Company Number: PHEH2018US011027

PATIENT
  Age: 38 Year
  Sex: Female

DRUGS (2)
  1. MEKINIST [Suspect]
     Active Substance: TRAMETINIB DIMETHYL SULFOXIDE
     Indication: SOFT TISSUE SARCOMA
  2. MEKINIST [Suspect]
     Active Substance: TRAMETINIB DIMETHYL SULFOXIDE
     Indication: MALIGNANT CONNECTIVE TISSUE NEOPLASM
     Dosage: 2 MG, QD
     Route: 048
     Dates: start: 20180102

REACTIONS (1)
  - Death [Fatal]

NARRATIVE: CASE EVENT DATE: 20180225
